FAERS Safety Report 8854351 (Version 2)
Quarter: 2015Q3

REPORT INFORMATION
  Report Type: Report from Study
  Country: US (occurrence: US)
  Receive Date: 20121023
  Receipt Date: 20150910
  Transmission Date: 20151125
  Serious: Yes (Other)
  Sender: FDA-Public Use
  Company Number: US-ROCHE-1136780

PATIENT
  Sex: Female

DRUGS (3)
  1. RAPTIVA [Suspect]
     Active Substance: EFALIZUMAB
     Indication: PUSTULAR PSORIASIS
  2. RAPTIVA [Suspect]
     Active Substance: EFALIZUMAB
     Indication: PUSTULAR PSORIASIS
  3. RAPTIVA [Suspect]
     Active Substance: EFALIZUMAB
     Indication: PSORIASIS
     Dosage: CONDITIONING DOSE 0.9 ML
     Route: 065

REACTIONS (4)
  - Hepatotoxicity [Unknown]
  - Sunburn [Unknown]
  - Back pain [Unknown]
  - Psoriasis [Unknown]
